FAERS Safety Report 5205599-3 (Version None)
Quarter: 2006Q4

REPORT INFORMATION
  Report Type: 
  Country: None (occurrence: None)
  Receive Date: 20061027
  Receipt Date: 20060831
  Transmission Date: 20070319
  Serious: No
  Sender: FDA-Public Use
  Company Number: POMP-10817

PATIENT
  Age: 12 Month
  Sex: Male
  Weight: 8.5 kg

DRUGS (7)
  1. MYOZYME [Suspect]
     Indication: GLYCOGEN STORAGE DISEASE TYPE II
     Dosage: 20 MG/KG Q2WKS; IV
     Route: 042
     Dates: start: 20060522
  2. ALPHA-GLUCOSIDASE (HUMAN, RECOMBINANT, CHO CELLS, GENZYME) [Suspect]
     Indication: GLYCOGEN STORAGE DISEASE TYPE II
     Dosage: 20 MG/KG Q2WKS; IV
     Route: 042
     Dates: start: 20060208, end: 20060511
  3. LASIX [Concomitant]
  4. SIMETHICONE [Concomitant]
  5. ZANTAC [Concomitant]
  6. BENADRYL [Concomitant]
  7. TYLENOL [Concomitant]

REACTIONS (5)
  - CHILLS [None]
  - HYPERHIDROSIS [None]
  - PALLOR [None]
  - TACHYCARDIA [None]
  - TREMOR [None]
